FAERS Safety Report 20712943 (Version 1)
Quarter: 2022Q2

REPORT INFORMATION
  Report Type: Spontaneous
  Country: US (occurrence: US)
  Receive Date: 20220415
  Receipt Date: 20220415
  Transmission Date: 20220720
  Serious: Yes (Other)
  Sender: FDA-Public Use
  Company Number: US-AMGEN-USASP2022062101

PATIENT
  Age: 57 Year
  Sex: Female

DRUGS (3)
  1. BEVACIZUMAB [Suspect]
     Active Substance: BEVACIZUMAB
     Indication: Ovarian cancer stage III
     Route: 065
  2. BEVACIZUMAB [Suspect]
     Active Substance: BEVACIZUMAB
     Indication: Ovarian cancer stage IV
  3. CARBOPLATIN\PACLITAXEL [Suspect]
     Active Substance: CARBOPLATIN\PACLITAXEL
     Indication: Ovarian cancer stage III
     Route: 065

REACTIONS (5)
  - Erythroid series abnormal [Unknown]
  - Neutropenia [Unknown]
  - Chromosomal deletion [Unknown]
  - TET2 gene mutation [Unknown]
  - Off label use [Unknown]
